FAERS Safety Report 21902653 (Version 2)
Quarter: 2023Q1

REPORT INFORMATION
  Report Type: Spontaneous
  Country: CA (occurrence: CA)
  Receive Date: 20230124
  Receipt Date: 20230201
  Transmission Date: 20230417
  Serious: Yes (Other)
  Sender: FDA-Public Use
  Company Number: CA-BAYER-2023P004178

PATIENT
  Sex: Female

DRUGS (2)
  1. EYLEA [Suspect]
     Active Substance: AFLIBERCEPT
     Indication: Diabetic retinal oedema
     Dosage: UNK, SOLUTION FOR INJECTION (STRENGTH: 40MG/ML)
  2. EYLEA [Suspect]
     Active Substance: AFLIBERCEPT
     Dosage: BOTH EYES; TOTAL OF 5 DOSES PRIOR TO THE EVENT, SOLUTION FOR INJECTION (STRENGTH: 40MG/ML)
     Dates: start: 20221215

REACTIONS (4)
  - Eye inflammation [Recovering/Resolving]
  - Multiple use of single-use product [Unknown]
  - Corneal striae [Unknown]
  - Anterior chamber cell [Unknown]

NARRATIVE: CASE EVENT DATE: 20221215
